FAERS Safety Report 4457911-0 (Version None)
Quarter: 2004Q3

REPORT INFORMATION
  Report Type: 
  Country: None (occurrence: None)
  Receive Date: 20040924
  Receipt Date: 20040913
  Transmission Date: 20050211
  Serious: Yes (Hospitalization)
  Sender: FDA-Public Use
  Company Number: US-JNJFOC-20040204046

PATIENT
  Sex: Male

DRUGS (11)
  1. DURAGESIC [Suspect]
     Route: 062
     Dates: start: 20040109, end: 20040214
  2. DURAGESIC [Suspect]
     Route: 062
     Dates: start: 20040109, end: 20040214
  3. AMBIEN [Concomitant]
     Indication: SLEEP DISORDER THERAPY
  4. TOPROL-XL [Concomitant]
     Indication: HYPERTENSION
  5. GABAPENTIN [Concomitant]
  6. LISINOPRIL [Concomitant]
     Indication: HYPERTENSION
  7. LASIX [Concomitant]
  8. COMBIVENT [Concomitant]
     Route: 055
  9. COMBIVENT [Concomitant]
     Dosage: FOUR TIMES DAILY AS NEEDED
     Route: 055
  10. GUAIFENESIN [Concomitant]
  11. ALBUTEROL [Concomitant]
     Route: 055

REACTIONS (21)
  - ASPARTATE AMINOTRANSFERASE INCREASED [None]
  - ATRIAL FIBRILLATION [None]
  - BACK PAIN [None]
  - BLOOD BILIRUBIN INCREASED [None]
  - BLOOD CREATININE INCREASED [None]
  - BLOOD PRESSURE INCREASED [None]
  - BLOOD UREA INCREASED [None]
  - CEREBRAL ATROPHY [None]
  - CHEST DISCOMFORT [None]
  - COMPUTERISED TOMOGRAM ABNORMAL [None]
  - CONFUSIONAL STATE [None]
  - DISORIENTATION [None]
  - DIZZINESS [None]
  - FALL [None]
  - FRACTURED SACRUM [None]
  - GLOBULINS INCREASED [None]
  - HAEMATOCRIT DECREASED [None]
  - HAEMOGLOBIN DECREASED [None]
  - MENTAL STATUS CHANGES [None]
  - PLEURAL FIBROSIS [None]
  - RIB FRACTURE [None]
